FAERS Safety Report 13940202 (Version 1)
Quarter: 2017Q3

REPORT INFORMATION
  Report Type: Spontaneous
  Country: US (occurrence: None)
  Receive Date: 20170906
  Receipt Date: 20170906
  Transmission Date: 20171127
  Serious: Yes (Other)
  Sender: FDA-Public Use
  Company Number: None

PATIENT
  Age: 73 Year
  Sex: Female
  Weight: 83.91 kg

DRUGS (6)
  1. SPRING VALLEY MELATONIN-3MG SLEEP SUPPORT?FIRST TIME I HAD USED THIS PRODUCT PRODUCT OFG CHINA SPRING VALLEY [Suspect]
     Active Substance: MELATONIN
     Indication: SLEEP DISORDER
     Dosage: 3 MG, 1 TAB, ONLY AT BEDTIME, ONE 3 MG, BY MOUTH
     Route: 048
     Dates: start: 20170809, end: 20170810
  2. LORAZEPAM. [Concomitant]
     Active Substance: LORAZEPAM
  3. CALCIUM [Concomitant]
     Active Substance: CALCIUM
  4. OMEPRAZOLE. [Concomitant]
     Active Substance: OMEPRAZOLE
  5. ASPIRIN. [Concomitant]
     Active Substance: ASPIRIN
  6. AZO BLADDER CONTROL [Concomitant]

REACTIONS (4)
  - Somnolence [None]
  - Lethargy [None]
  - Loss of personal independence in daily activities [None]
  - Overdose [None]

NARRATIVE: CASE EVENT DATE: 20170809
